FAERS Safety Report 6573966-1 (Version None)
Quarter: 2010Q1

REPORT INFORMATION
  Report Type: 
  Country: None (occurrence: None)
  Receive Date: 20100208
  Receipt Date: 20100204
  Transmission Date: 20100710
  Serious: Yes (Death)
  Sender: FDA-Public Use
  Company Number: GB-B.I. PHARMACEUTICALS,INC./RIDGEFIELD-2010-UK-00088UK

PATIENT
  Age: 93 Year
  Sex: Female

DRUGS (4)
  1. MOBIC [Suspect]
     Indication: OSTEOARTHRITIS
     Dosage: 15 MG
     Route: 048
     Dates: start: 20050216, end: 20050730
  2. ADCAL-D3 [Concomitant]
     Dosage: 1 (UNSPECIFIED)
     Route: 048
     Dates: start: 20030216
  3. BENDROFLUAZIDE [Concomitant]
     Dosage: 2.5 MG
     Route: 048
     Dates: start: 20030216
  4. VALSARTAN [Concomitant]
     Dosage: 40 MG
     Route: 048
     Dates: start: 20030216

REACTIONS (1)
  - ISCHAEMIC STROKE [None]
